FAERS Safety Report 12716982 (Version 1)
Quarter: 2016Q3

REPORT INFORMATION
  Report Type: Spontaneous
  Country: CH (occurrence: CH)
  Receive Date: 20160906
  Receipt Date: 20160906
  Transmission Date: 20161109
  Serious: Yes (Death, Hospitalization)
  Sender: FDA-Public Use
  Company Number: CH-SEBELA IRELAND LIMITED-2016SEB01454

PATIENT
  Age: 78 Year
  Sex: Female

DRUGS (2)
  1. ALLOPURINOL. [Suspect]
     Active Substance: ALLOPURINOL
     Indication: HYPERURICAEMIA
     Dosage: UNK
     Route: 065
  2. LOSARTAN. [Concomitant]
     Active Substance: LOSARTAN
     Route: 065

REACTIONS (5)
  - Cardiac failure acute [Fatal]
  - Eosinophilic myocarditis [Fatal]
  - Thrombotic microangiopathy [Fatal]
  - Drug reaction with eosinophilia and systemic symptoms [Fatal]
  - Papillary muscle rupture [Fatal]
